FAERS Safety Report 17442096 (Version 1)
Quarter: 2020Q1

REPORT INFORMATION
  Report Type: Spontaneous
  Country: US (occurrence: US)
  Receive Date: 20200220
  Receipt Date: 20200220
  Transmission Date: 20200409
  Serious: No
  Sender: FDA-Public Use
  Company Number: US-TAKEDA-2020TUS010058

PATIENT
  Age: 30 Year
  Sex: Female
  Weight: 58.96 kg

DRUGS (1)
  1. TRINTELLIX [Suspect]
     Active Substance: VORTIOXETINE HYDROBROMIDE
     Indication: MAJOR DEPRESSION
     Dosage: 10 MILLIGRAM, QD
     Route: 065

REACTIONS (1)
  - Rash [Recovered/Resolved]
